FAERS Safety Report 7078738-X (Version None)
Quarter: 2010Q4

REPORT INFORMATION
  Report Type: 
  Country: None (occurrence: None)
  Receive Date: 20101102
  Receipt Date: 20101027
  Transmission Date: 20110411
  Serious: Yes (Other)
  Sender: FDA-Public Use
  Company Number: GB-PFIZER INC-2010137271

PATIENT
  Age: 37 Year
  Weight: 73.02 kg

DRUGS (3)
  1. CHAMPIX [Suspect]
     Indication: SMOKING CESSATION THERAPY
     Dosage: 1 MG, 2X/DAY
     Route: 048
     Dates: start: 20100913
  2. CERAZETTE [Concomitant]
     Dosage: UNK
  3. SERTRALINE [Concomitant]
     Indication: DEPRESSION
     Dosage: UNK

REACTIONS (5)
  - ABNORMAL BEHAVIOUR [None]
  - AFFECTIVE DISORDER [None]
  - ANXIETY [None]
  - IMPATIENCE [None]
  - PANIC DISORDER [None]
